FAERS Safety Report 6750984-1 (Version None)
Quarter: 2010Q2

REPORT INFORMATION
  Report Type: 
  Country: None (occurrence: None)
  Receive Date: 20100526
  Receipt Date: 20100511
  Transmission Date: 20101027
  Serious: Yes (Hospitalization, Disabling)
  Sender: FDA-Public Use
  Company Number: 2010PV000015

PATIENT
  Age: 73 Year
  Sex: Male

DRUGS (6)
  1. DEPOCYT [Suspect]
     Indication: DIFFUSE LARGE B-CELL LYMPHOMA RECURRENT
     Dosage: 50 MG; INTH
     Route: 055
     Dates: start: 20090812, end: 20091006
  2. RITUXIMAB [Concomitant]
  3. METHOTREXATE [Concomitant]
  4. PROCARBAZINE [Concomitant]
  5. VINCRISTINE [Concomitant]
  6. METHYLPREDNISOLONE [Concomitant]

REACTIONS (7)
  - AXONAL NEUROPATHY [None]
  - BALANCE DISORDER [None]
  - CONSTIPATION [None]
  - HYPOAESTHESIA [None]
  - NO THERAPEUTIC RESPONSE [None]
  - PARAPARESIS [None]
  - URINARY INCONTINENCE [None]
